FAERS Safety Report 4847972-9 (Version None)
Quarter: 2005Q4

REPORT INFORMATION
  Report Type: 
  Country: None (occurrence: None)
  Receive Date: 20051205
  Receipt Date: 20051205
  Transmission Date: 20060501
  Serious: Yes (Other)
  Sender: FDA-Public Use
  Company Number: None

PATIENT
  Age: 60 Year
  Sex: Female
  Weight: 86.1834 kg

DRUGS (2)
  1. ZICAM   ZINCUM  GLUCONICUM   2X  ZICAM / MATRIXX INITIATIVES [Suspect]
     Indication: NASAL CONGESTION
     Dosage: ONE SQUIRT EACH NOSTRIL   ONCE   NASAL
     Route: 045
     Dates: start: 20051130, end: 20051130
  2. ZICAM   ZINCUM  GLUCONICUM   2X  ZICAM / MATRIXX INITIATIVES [Suspect]
     Indication: NASOPHARYNGITIS
     Dosage: ONE SQUIRT EACH NOSTRIL   ONCE   NASAL
     Route: 045
     Dates: start: 20051130, end: 20051130

REACTIONS (5)
  - AGEUSIA [None]
  - ANOSMIA [None]
  - APPLICATION SITE IRRITATION [None]
  - APPLICATION SITE REACTION [None]
  - NASAL DISCOMFORT [None]
